FAERS Safety Report 25703394 (Version 1)
Quarter: 2025Q3

REPORT INFORMATION
  Report Type: Spontaneous
  Country: CA (occurrence: CA)
  Receive Date: 20250820
  Receipt Date: 20250820
  Transmission Date: 20251020
  Serious: Yes (Other)
  Sender: ROCHE
  Company Number: CA-ROCHE-10000367303

PATIENT
  Age: 70 Year
  Sex: Male

DRUGS (1)
  1. PIRFENIDONE [Suspect]
     Active Substance: PIRFENIDONE
     Indication: Idiopathic pulmonary fibrosis
     Route: 048

REACTIONS (4)
  - Drug ineffective [Unknown]
  - Idiopathic pulmonary fibrosis [Unknown]
  - Restrictive pulmonary disease [Unknown]
  - Total lung capacity decreased [Unknown]
